FAERS Safety Report 10639948 (Version 1)
Quarter: 2014Q4

REPORT INFORMATION
  Report Type: Spontaneous
  Country: US (occurrence: US)
  Receive Date: 20141209
  Receipt Date: 20141209
  Transmission Date: 20150529
  Serious: No
  Sender: FDA-Public Use
  Company Number: US-PFIZER INC-2014329484

PATIENT
  Age: 88 Year
  Sex: Female

DRUGS (2)
  1. ADVIL [Suspect]
     Active Substance: IBUPROFEN
     Dosage: UNK
  2. ADVIL PM [Suspect]
     Active Substance: DIPHENHYDRAMINE CITRATE\IBUPROFEN
     Dosage: 2 CAPSULES, UNK
     Dates: start: 20141128

REACTIONS (2)
  - Somnolence [Not Recovered/Not Resolved]
  - Wrong drug administered [Unknown]

NARRATIVE: CASE EVENT DATE: 20141128
